FAERS Safety Report 5167407-9 (Version None)
Quarter: 2006Q4

REPORT INFORMATION
  Report Type: 
  Country: None (occurrence: None)
  Receive Date: 20061130
  Receipt Date: 20061117
  Transmission Date: 20070319
  Serious: Yes (Hospitalization)
  Sender: FDA-Public Use
  Company Number: 2006045087

PATIENT
  Age: 63 Year
  Sex: Male
  Weight: 69 kg

DRUGS (10)
  1. SUTENT [Suspect]
     Indication: GASTROINTESTINAL STROMAL TUMOUR
     Dosage: 50 MG (50 MG, DAILY, INTERVAL: 28 DAYS ON, 14 DAYS OFF), ORAL
     Route: 048
     Dates: start: 20060123
  2. POTASSIUM CHLORIDE [Concomitant]
  3. NEXIUM [Concomitant]
  4. SAB SIMPLEX [Concomitant]
  5. BUSERELIN [Concomitant]
  6. LOPERAMID (LOPERAMIDE HYDROCHLORIDE) [Concomitant]
  7. PANTOZOL (PANTOPRAZOLE SODIUM) [Concomitant]
  8. ZOLPIDEM TARTRATE [Concomitant]
  9. MIDAZOLAM HCL [Concomitant]
  10. PROPOFOL [Concomitant]

REACTIONS (3)
  - ABSCESS [None]
  - GASTRIC DISORDER [None]
  - TUMOUR NECROSIS [None]
